FAERS Safety Report 8359934-8 (Version None)
Quarter: 2012Q2

REPORT INFORMATION
  Report Type: 
  Country: None (occurrence: None)
  Receive Date: 20120515
  Receipt Date: 20120509
  Transmission Date: 20120825
  Serious: Yes (Hospitalization, Disabling, Other)
  Sender: FDA-Public Use
  Company Number: MX-SANOFI-AVENTIS-2012SA033133

PATIENT
  Age: 91 Year
  Sex: Female
  Weight: 68 kg

DRUGS (8)
  1. ALLEGRA [Concomitant]
     Route: 048
     Dates: start: 20111101
  2. LANTUS [Suspect]
     Route: 058
     Dates: start: 20120101
  3. DOCUSATE SODIUM [Concomitant]
     Indication: CONSTIPATION
     Route: 048
  4. MEMANTINE HYDROCHLORIDE [Concomitant]
     Indication: PROPHYLAXIS
     Route: 048
     Dates: start: 20100101
  5. ASPIRIN [Concomitant]
     Indication: PROPHYLAXIS
     Route: 048
     Dates: start: 20100101
  6. ALPRAZOLAM [Concomitant]
     Indication: INSOMNIA
     Route: 048
     Dates: start: 20100101
  7. LANTUS [Suspect]
     Indication: TYPE 2 DIABETES MELLITUS
     Route: 058
     Dates: start: 20100301, end: 20110901
  8. SOMAZINA [Concomitant]
     Indication: PROPHYLAXIS
     Route: 048
     Dates: start: 20100101

REACTIONS (5)
  - HYPERGLYCAEMIA [None]
  - URINARY TRACT INFECTION [None]
  - DECUBITUS ULCER [None]
  - ABASIA [None]
  - BLOOD GLUCOSE INCREASED [None]
